FAERS Safety Report 7418316-3 (Version None)
Quarter: 2011Q2

REPORT INFORMATION
  Report Type: 
  Country: None (occurrence: None)
  Receive Date: 20110415
  Receipt Date: 20110412
  Transmission Date: 20111010
  Serious: Yes (Hospitalization)
  Sender: FDA-Public Use
  Company Number: A0742974A

PATIENT
  Age: 62 Year
  Sex: Male
  Weight: 115.9 kg

DRUGS (5)
  1. AVANDAMET [Suspect]
     Route: 048
  2. CLONIDINE [Concomitant]
  3. METFORMIN HCL [Concomitant]
  4. LISINOPRIL [Concomitant]
  5. AVANDIA [Suspect]
     Dosage: 2MG UNKNOWN
     Route: 048
     Dates: start: 20060425

REACTIONS (3)
  - MYOCARDIAL INFARCTION [None]
  - CARDIAC FAILURE CONGESTIVE [None]
  - CARDIOMYOPATHY [None]
